FAERS Safety Report 8023832-X (Version None)
Quarter: 2012Q1

REPORT INFORMATION
  Report Type: 
  Country: None (occurrence: None)
  Receive Date: 20120103
  Receipt Date: 20120103
  Transmission Date: 20120608
  Serious: Yes (Other)
  Sender: FDA-Public Use
  Company Number: None

PATIENT
  Age: 28 Year
  Sex: Female
  Weight: 105.7 kg

DRUGS (1)
  1. HEPARIN [Suspect]
     Dosage: 5000 UNITS QB SUBCUTANEOUS 1 DOSE
     Route: 058
     Dates: start: 20111109, end: 20111109

REACTIONS (3)
  - THROAT IRRITATION [None]
  - DYSPNOEA [None]
  - PARAESTHESIA [None]
